FAERS Safety Report 8831347 (Version 6)
Quarter: 2014Q4

REPORT INFORMATION
  Report Type: Spontaneous
  Country: US (occurrence: US)
  Receive Date: 20121008
  Receipt Date: 20141029
  Transmission Date: 20150529
  Serious: Yes (Hospitalization, Other)
  Sender: FDA-Public Use
  Company Number: US-009507513-1210USA000855

PATIENT
  Sex: Female
  Weight: 63.49 kg

DRUGS (3)
  1. FOSAMAX [Suspect]
     Active Substance: ALENDRONATE SODIUM
     Indication: OSTEOPENIA
  2. ALENDRONATE SODIUM. [Suspect]
     Active Substance: ALENDRONATE SODIUM
     Indication: OSTEOPOROSIS
     Dosage: 70 MG, UNK
     Route: 048
     Dates: start: 20080729, end: 20100708
  3. FOSAMAX [Suspect]
     Active Substance: ALENDRONATE SODIUM
     Indication: OSTEOPOROSIS
     Dosage: 70 MG, QW
     Route: 048
     Dates: start: 2000, end: 2008

REACTIONS (22)
  - Low turnover osteopathy [Unknown]
  - Ankle operation [Unknown]
  - Blood cholesterol increased [Unknown]
  - Gastrointestinal haemorrhage [Unknown]
  - Depression [Unknown]
  - Urinary retention [Unknown]
  - Confusional state [Unknown]
  - Oral surgery [Unknown]
  - Anaemia [Unknown]
  - Fall [Unknown]
  - Chronic obstructive pulmonary disease [Unknown]
  - Femur fracture [Unknown]
  - Ankle fracture [Unknown]
  - Intramedullary rod insertion [Unknown]
  - Fall [Unknown]
  - Limb discomfort [Unknown]
  - Thrombocytopenia [Unknown]
  - Cerebrovascular accident [Unknown]
  - Arthritis [Unknown]
  - Tendinous contracture [Unknown]
  - Joint injury [Unknown]
  - Endodontic procedure [Unknown]

NARRATIVE: CASE EVENT DATE: 2000
